FAERS Safety Report 6379660-4 (Version None)
Quarter: 2009Q3

REPORT INFORMATION
  Report Type: 
  Country: None (occurrence: None)
  Receive Date: 20090924
  Receipt Date: 20090924
  Transmission Date: 20100115
  Serious: Yes (Hospitalization)
  Sender: FDA-Public Use
  Company Number: None

PATIENT
  Age: 40 Year
  Sex: Female
  Weight: 81.6 kg

DRUGS (8)
  1. FASLODEX [Suspect]
     Indication: BREAST CANCER METASTATIC
     Dosage: 250 MGDAYS 14, 28 IM (30
     Route: 030
     Dates: start: 20080624
  2. FASLODEX [Suspect]
     Indication: BREAST CANCER METASTATIC
     Dosage: 250 MGDAYS 14, 28 IM (30
     Route: 030
     Dates: start: 20080708
  3. FASLODEX [Suspect]
     Indication: BREAST CANCER METASTATIC
     Dosage: 250 MGDAYS 14, 28 IM (30
     Route: 030
     Dates: start: 20080722
  4. RAD001 [Suspect]
     Indication: BREAST CANCER METASTATIC
     Dosage: RAD001  5 MG DAILY  PO (047)
     Route: 048
  5. DILAUDID [Concomitant]
  6. FENTANYL [Concomitant]
  7. PERI-COLACE [Concomitant]
  8. . [Concomitant]

REACTIONS (4)
  - DEHYDRATION [None]
  - METASTASES TO BONE [None]
  - NAUSEA [None]
  - VOMITING [None]
